FAERS Safety Report 4658331-6 (Version None)
Quarter: 2005Q2

REPORT INFORMATION
  Report Type: 
  Country: None (occurrence: None)
  Receive Date: 20050509
  Receipt Date: 20050502
  Transmission Date: 20051028
  Serious: Yes (Hospitalization, Other)
  Sender: FDA-Public Use
  Company Number: 2005068965

PATIENT
  Age: 57 Year
  Sex: Female

DRUGS (14)
  1. LIPITOR [Suspect]
     Indication: ILL-DEFINED DISORDER
     Dosage: ORAL
     Route: 048
  2. LISINOPRIL [Suspect]
     Indication: ILL-DEFINED DISORDER
     Dosage: ORAL
     Route: 048
  3. NAPROSYN [Suspect]
     Indication: ILL-DEFINED DISORDER
     Dosage: ORAL
     Route: 048
  4. PREDNISONE TAB [Suspect]
     Indication: ILL-DEFINED DISORDER
     Dosage: ORAL
     Route: 048
  5. MOXIFLOXACIN HCL [Suspect]
     Indication: BRONCHITIS
     Dosage: ORAL
     Route: 048
     Dates: start: 20050324
  6. DILTIAZEM HYDROCHLORIDE [Suspect]
     Indication: ILL-DEFINED DISORDER
     Dosage: ORAL
     Route: 048
  7. ESTRADIOL [Concomitant]
  8. FUROSEMIDE [Concomitant]
  9. GUIAFENESIN [Concomitant]
  10. COMBIVENT [Concomitant]
  11. METOPROLOL SUCCINATE [Concomitant]
  12. MOMETASONE FUROATE [Concomitant]
  13. BUDESONIDE [Concomitant]
  14. WARFARIN SODIUM [Concomitant]

REACTIONS (3)
  - ABDOMINAL HAEMATOMA [None]
  - ABDOMINAL PAIN [None]
  - BRONCHITIS [None]
